FAERS Safety Report 11407723 (Version 1)
Quarter: 2015Q3

REPORT INFORMATION
  Report Type: Report from Study
  Country: US (occurrence: US)
  Receive Date: 20150821
  Receipt Date: 20150821
  Transmission Date: 20151125
  Serious: Yes (Hospitalization)
  Sender: FDA-Public Use
  Company Number: US-GILEAD-2015-0158462

PATIENT
  Age: 73 Year
  Sex: Female

DRUGS (1)
  1. IDELALISIB [Suspect]
     Active Substance: IDELALISIB
     Indication: B-CELL LYMPHOMA
     Dosage: 150 MG, UNK
     Route: 048
     Dates: start: 20140806, end: 2015

REACTIONS (2)
  - Drug interaction [Unknown]
  - Mental status changes [Unknown]
